FAERS Safety Report 19014636 (Version 1)
Quarter: 2021Q1

REPORT INFORMATION
  Report Type: Report from Study
  Country: US (occurrence: US)
  Receive Date: 20210316
  Receipt Date: 20210316
  Transmission Date: 20210420
  Serious: Yes (Hospitalization)
  Sender: FDA-Public Use
  Company Number: US-EXELIXIS-CABO-21038500

PATIENT
  Sex: Male
  Weight: 97.51 kg

DRUGS (19)
  1. ATORVASTATIN [Concomitant]
     Active Substance: ATORVASTATIN
  2. FUROSEMIDE. [Concomitant]
     Active Substance: FUROSEMIDE
  3. MAGNESIUM [Concomitant]
     Active Substance: MAGNESIUM
  4. PEPCID [Concomitant]
     Active Substance: FAMOTIDINE
  5. METOPROLOL. [Concomitant]
     Active Substance: METOPROLOL
  6. LENVIMA [Concomitant]
     Active Substance: LENVATINIB
  7. HALOBETASOL PROPIONATE. [Concomitant]
     Active Substance: HALOBETASOL PROPIONATE
  8. OXYCODONE [Concomitant]
     Active Substance: OXYCODONE
  9. PLIAGLIS [Concomitant]
     Active Substance: LIDOCAINE\TETRACAINE
  10. CABOMETYX [Suspect]
     Active Substance: CABOZANTINIB S-MALATE
     Indication: RENAL CANCER
     Dosage: 40 MG, QD
     Route: 048
     Dates: start: 20201216
  11. DILTIAZEM. [Concomitant]
     Active Substance: DILTIAZEM
  12. FOSINOPRIL [Concomitant]
     Active Substance: FOSINOPRIL
  13. XARELTO [Concomitant]
     Active Substance: RIVAROXABAN
  14. AMIODARONE [Concomitant]
     Active Substance: AMIODARONE
  15. PANTOPRAZOLE [Concomitant]
     Active Substance: PANTOPRAZOLE
  16. TRIAMCINOLONE ACETONIDE. [Concomitant]
     Active Substance: TRIAMCINOLONE ACETONIDE
  17. ALFUZOSIN [Concomitant]
     Active Substance: ALFUZOSIN
  18. GABAPENTIN. [Concomitant]
     Active Substance: GABAPENTIN
  19. POTASSIUM [Concomitant]
     Active Substance: POTASSIUM

REACTIONS (1)
  - Wound [Unknown]
